FAERS Safety Report 12164145 (Version 1)
Quarter: 2016Q1

REPORT INFORMATION
  Report Type: Spontaneous
  Country: CA (occurrence: CA)
  Receive Date: 20160309
  Receipt Date: 20160309
  Transmission Date: 20160526
  Serious: Yes (Life-Threatening, Hospitalization, Other)
  Sender: FDA-Public Use
  Company Number: CA-TEVA-641890ACC

PATIENT
  Age: 64 Year
  Weight: 83 kg

DRUGS (1)
  1. CISPLATIN INJECTION [Suspect]
     Active Substance: CISPLATIN
     Indication: NONKERATINISING CARCINOMA OF NASOPHARYNX
     Route: 048

REACTIONS (3)
  - Gastrointestinal haemorrhage [Not Recovered/Not Resolved]
  - Gastrointestinal necrosis [Not Recovered/Not Resolved]
  - Ileectomy [Not Recovered/Not Resolved]
